FAERS Safety Report 17210493 (Version 2)
Quarter: 2020Q1

REPORT INFORMATION
  Report Type: Spontaneous
  Country: US (occurrence: US)
  Receive Date: 20191227
  Receipt Date: 20200317
  Transmission Date: 20200409
  Serious: No
  Sender: FDA-Public Use
  Company Number: NVSC2019US079350

PATIENT
  Sex: Male

DRUGS (2)
  1. ILARIS [Suspect]
     Active Substance: CANAKINUMAB
     Dosage: UNK
     Route: 065
     Dates: start: 201909
  2. ILARIS [Suspect]
     Active Substance: CANAKINUMAB
     Indication: PRODUCT USED FOR UNKNOWN INDICATION
     Dosage: 150 MG ( (BENEATH THE SKIN, USUALLY VIA INJECTION)
     Route: 058

REACTIONS (2)
  - Symptom recurrence [Not Recovered/Not Resolved]
  - Product dose omission [Not Recovered/Not Resolved]
